FAERS Safety Report 22696165 (Version 3)
Quarter: 2024Q3

REPORT INFORMATION
  Report Type: Spontaneous
  Country: US (occurrence: US)
  Receive Date: 20230712
  Receipt Date: 20240815
  Transmission Date: 20241017
  Serious: Yes (Hospitalization)
  Sender: PFIZER
  Company Number: US-TAKEDA-2021TUS062021

PATIENT
  Age: 64 Year
  Sex: Male

DRUGS (4)
  1. PANTOPRAZOLE [Interacting]
     Active Substance: PANTOPRAZOLE
     Indication: Chronic hepatitis C
     Dosage: 40 MILLIGRAM, BID
     Route: 048
  2. PANTOPRAZOLE [Interacting]
     Active Substance: PANTOPRAZOLE
     Dosage: 40 MG, 1X/DAY ONE SMALL CAN OF SODA., ONE SOF/VEL, ONE PANTOPRAZOLE
     Route: 048
  3. EPCLUSA [Interacting]
     Active Substance: SOFOSBUVIR\VELPATASVIR
     Indication: Chronic hepatitis C
     Dosage: UNK UNK, 1X/DAY ONE SMALL CAN OF SODA., ONE SOF/VEL, ONE PANTOPRAZOLE
     Route: 048
  4. BUPRENORPHINE AND NALOXONE [Interacting]
     Active Substance: BUPRENORPHINE HYDROCHLORIDE\NALOXONE HYDROCHLORIDE
     Indication: Drug use disorder
     Dosage: 8 MG/2 MG,2X/DAY
     Route: 060

REACTIONS (3)
  - Mental status changes [Unknown]
  - Drug interaction [Unknown]
  - Off label use [Unknown]
